FAERS Safety Report 14593008 (Version 1)
Quarter: 2018Q1

REPORT INFORMATION
  Report Type: Spontaneous
  Country: US (occurrence: US)
  Receive Date: 20180302
  Receipt Date: 20180302
  Transmission Date: 20180509
  Serious: Yes (Other)
  Sender: FDA-Public Use
  Company Number: US-UCBSA-2018008321

PATIENT

DRUGS (1)
  1. CIMZIA [Suspect]
     Active Substance: CERTOLIZUMAB PEGOL
     Indication: RHEUMATOID ARTHRITIS
     Dosage: 1 DF, EV 2 WEEKS(QOW)
     Route: 064
     Dates: start: 201707, end: 20170731

REACTIONS (3)
  - Foetal exposure during pregnancy [Unknown]
  - Congenital anomaly [Unknown]
  - Foetal heart rate abnormal [Unknown]

NARRATIVE: CASE EVENT DATE: 2017
